FAERS Safety Report 18026879 (Version 1)
Quarter: 2020Q3

REPORT INFORMATION
  Report Type: Spontaneous
  Country: US (occurrence: US)
  Receive Date: 20200715
  Receipt Date: 20200715
  Transmission Date: 20201103
  Serious: No
  Sender: FDA-Public Use
  Company Number: US-INCYTE CORPORATION-2020IN006566

PATIENT

DRUGS (4)
  1. VERAPAMIL [Concomitant]
     Active Substance: VERAPAMIL HYDROCHLORIDE
     Indication: HYPERTENSION
     Route: 065
  2. JAKAFI [Suspect]
     Active Substance: RUXOLITINIB
     Indication: BLOOD DISORDER
     Route: 065
  3. VERAPAMIL [Concomitant]
     Active Substance: VERAPAMIL HYDROCHLORIDE
     Indication: MIGRAINE
  4. JAKAFI [Suspect]
     Active Substance: RUXOLITINIB
     Indication: PLATELET COUNT DECREASED

REACTIONS (4)
  - Migraine [Unknown]
  - Platelet count decreased [Unknown]
  - Off label use [Unknown]
  - Hypertension [Unknown]
